FAERS Safety Report 12562149 (Version 8)
Quarter: 2020Q3

REPORT INFORMATION
  Report Type: Report from Study
  Country: FR (occurrence: FR)
  Receive Date: 20160715
  Receipt Date: 20170302
  Transmission Date: 20201104
  Serious: Yes (Hospitalization)
  Sender: FDA-Public Use
  Company Number: FR-JNJFOC-20160227868

PATIENT
  Age: 67 Year
  Sex: Male
  Weight: 96 kg

DRUGS (22)
  1. SERETIDE [Concomitant]
     Active Substance: FLUTICASONE PROPIONATE\SALMETEROL XINAFOATE
     Indication: DUST ALLERGY
     Route: 048
  2. ATACAND [Concomitant]
     Active Substance: CANDESARTAN CILEXETIL
     Indication: HYPERTENSION
     Route: 048
  3. SERETIDE [Concomitant]
     Active Substance: FLUTICASONE PROPIONATE\SALMETEROL XINAFOATE
     Indication: MITE ALLERGY
     Route: 048
  4. SERETIDE [Concomitant]
     Active Substance: FLUTICASONE PROPIONATE\SALMETEROL XINAFOATE
     Indication: ALLERGY TO ANIMAL
     Route: 048
  5. DEXAMETHASONE. [Suspect]
     Active Substance: DEXAMETHASONE
     Indication: PLASMA CELL MYELOMA
     Route: 065
     Dates: start: 20160203
  6. AUGMENTIN [Concomitant]
     Active Substance: AMOXICILLIN\CLAVULANATE POTASSIUM
     Indication: BRONCHITIS
     Route: 048
     Dates: start: 20160223
  7. DARATUMUMAB [Suspect]
     Active Substance: DARATUMUMAB
     Indication: PLASMA CELL MYELOMA
     Route: 042
     Dates: start: 20160203
  8. REVLIMID [Suspect]
     Active Substance: LENALIDOMIDE
     Indication: PLASMA CELL MYELOMA
     Route: 048
     Dates: start: 20160203
  9. ATACAND [Concomitant]
     Active Substance: CANDESARTAN CILEXETIL
     Indication: HYPERTENSION
     Route: 048
  10. KARDEGIC [Concomitant]
     Active Substance: ASPIRIN DL-LYSINE
     Indication: THROMBOSIS PROPHYLAXIS
     Route: 048
     Dates: start: 20160203, end: 20160223
  11. ORELOX [Concomitant]
     Active Substance: CEFPODOXIME
     Indication: BRONCHITIS
     Route: 048
     Dates: start: 20160218, end: 20160223
  12. DARATUMUMAB [Suspect]
     Active Substance: DARATUMUMAB
     Route: 042
  13. LERCAN [Concomitant]
     Active Substance: LERCANIDIPINE
     Indication: HYPERTENSION
     Route: 048
  14. ATACAND [Concomitant]
     Active Substance: CANDESARTAN CILEXETIL
     Indication: HYPERTENSION
     Route: 048
  15. ATACAND [Concomitant]
     Active Substance: CANDESARTAN CILEXETIL
     Indication: HYPERTENSION
     Route: 048
  16. AUGMENTIN [Concomitant]
     Active Substance: AMOXICILLIN\CLAVULANATE POTASSIUM
     Indication: SINUSITIS
     Route: 048
     Dates: start: 20160223
  17. LERCAN [Concomitant]
     Active Substance: LERCANIDIPINE
     Indication: HYPERTENSION
     Route: 048
  18. AUGMENTIN [Concomitant]
     Active Substance: AMOXICILLIN\CLAVULANATE POTASSIUM
     Indication: BRONCHITIS
     Route: 048
     Dates: start: 201602, end: 20160217
  19. DEXAMETHASONE. [Suspect]
     Active Substance: DEXAMETHASONE
     Indication: PLASMA CELL MYELOMA
     Route: 065
     Dates: start: 20160210
  20. INEXIUM [Concomitant]
     Active Substance: ESOMEPRAZOLE
     Indication: GASTROINTESTINAL DISORDER THERAPY
     Route: 048
     Dates: start: 20160203, end: 20160210
  21. GAVISCON [Concomitant]
     Active Substance: ALUMINUM HYDROXIDE\MAGNESIUM CARBONATE
     Indication: GASTROINTESTINAL DISORDER THERAPY
     Route: 048
     Dates: start: 20160204, end: 20160210
  22. AUGMENTIN [Concomitant]
     Active Substance: AMOXICILLIN\CLAVULANATE POTASSIUM
     Indication: SINUSITIS
     Route: 048
     Dates: start: 201602, end: 20160217

REACTIONS (1)
  - Pulmonary embolism [Recovered/Resolved]

NARRATIVE: CASE EVENT DATE: 20160224
